FAERS Safety Report 15819587 (Version 1)
Quarter: 2019Q1

REPORT INFORMATION
  Report Type: Report from Study
  Country: CA (occurrence: CA)
  Receive Date: 20190114
  Receipt Date: 20190114
  Transmission Date: 20190417
  Serious: Yes (Other)
  Sender: FDA-Public Use
  Company Number: CA-BEH-2019098284

PATIENT
  Age: 34 Year
  Sex: Male

DRUGS (3)
  1. XARELTO [Concomitant]
     Active Substance: RIVAROXABAN
     Dosage: UNK, QD
     Route: 065
  2. HIZENTRA [Suspect]
     Active Substance: HUMAN IMMUNOGLOBULIN G
     Indication: CHRONIC INFLAMMATORY DEMYELINATING POLYRADICULONEUROPATHY
     Dosage: 31 G, QW
     Route: 058
     Dates: start: 20181213
  3. HIZENTRA [Suspect]
     Active Substance: HUMAN IMMUNOGLOBULIN G
     Dosage: 31 G, UNK
     Route: 058
     Dates: start: 20190103, end: 20190103

REACTIONS (4)
  - Feeling hot [Recovered/Resolved]
  - Visual impairment [Recovered/Resolved]
  - Asthenia [Recovered/Resolved]
  - Blood pressure decreased [Recovered/Resolved]

NARRATIVE: CASE EVENT DATE: 20190104
